FAERS Safety Report 10388656 (Version 1)
Quarter: 2014Q3

REPORT INFORMATION
  Report Type: Report from Study
  Country: JP (occurrence: JP)
  Receive Date: 20140815
  Receipt Date: 20140815
  Transmission Date: 20150326
  Serious: Yes (Other)
  Sender: FDA-Public Use
  Company Number: JP-GILEAD-2014-0112152

PATIENT
  Age: 51 Year
  Sex: Male

DRUGS (5)
  1. ZITHROMAC [Concomitant]
     Active Substance: AZITHROMYCIN DIHYDRATE
     Indication: PNEUMONIA BACTERIAL
     Dosage: UNK UNK, QD
     Dates: start: 20130108, end: 20130108
  2. NORVIR [Suspect]
     Active Substance: RITONAVIR
     Indication: HIV INFECTION
     Dosage: 100 MG, QD
     Route: 048
     Dates: start: 20120522
  3. PREZISTANAIVE [Suspect]
     Active Substance: DARUNAVIR
     Indication: HIV INFECTION
     Dosage: 800 MG, QD
     Route: 048
     Dates: start: 20120522
  4. EMTRICITABINE/TENOFOVIR DISOPROXIL FUMARATE [Suspect]
     Active Substance: EMTRICITABINE\TENOFOVIR DISOPROXIL
     Indication: HIV INFECTION
     Dosage: 1 DF, QD
     Route: 048
     Dates: start: 20120522
  5. MEIACT [Concomitant]
     Active Substance: CEFDITOREN PIVOXIL
     Indication: PNEUMONIA BACTERIAL
     Dosage: UNK UNK, TID
     Dates: start: 20130108, end: 20130115

REACTIONS (1)
  - Osteoporosis [Not Recovered/Not Resolved]
